FAERS Safety Report 5674989-7 (Version None)
Quarter: 2008Q1

REPORT INFORMATION
  Report Type: 
  Country: None (occurrence: None)
  Receive Date: 20080320
  Receipt Date: 20080312
  Transmission Date: 20080703
  Serious: Yes (Other)
  Sender: FDA-Public Use
  Company Number: US-PFIZER INC-2008022432

PATIENT
  Sex: Female

DRUGS (1)
  1. BEXTRA [Suspect]

REACTIONS (3)
  - CARDIAC DISORDER [None]
  - MITRAL VALVE PROLAPSE [None]
  - SUPRAVENTRICULAR TACHYCARDIA [None]
